FAERS Safety Report 9270075 (Version 2)
Quarter: 2013Q2

REPORT INFORMATION
  Report Type: Spontaneous
  Country: GB (occurrence: GB)
  Receive Date: 20130503
  Receipt Date: 20130522
  Transmission Date: 20140414
  Serious: Yes (Other)
  Sender: FDA-Public Use
  Company Number: GB-JNJFOC-20130414816

PATIENT
  Sex: Female

DRUGS (3)
  1. STELARA [Suspect]
     Indication: PSORIASIS
     Route: 058
     Dates: start: 20120202, end: 20130424
  2. OMEPRAZOLE [Concomitant]
     Route: 065
     Dates: start: 20130418
  3. NAPROXEN [Concomitant]
     Route: 065
     Dates: start: 20130418

REACTIONS (2)
  - Erythema nodosum [Not Recovered/Not Resolved]
  - Hilar lymphadenopathy [Not Recovered/Not Resolved]
